FAERS Safety Report 11576074 (Version 1)
Quarter: 2015Q3

REPORT INFORMATION
  Report Type: Spontaneous
  Country: US (occurrence: US)
  Receive Date: 20150916
  Receipt Date: 20150916
  Transmission Date: 20151125
  Serious: Yes (Hospitalization, Other)
  Sender: FDA-Public Use
  Company Number: US-ELI_LILLY_AND_COMPANY-US201305002447

PATIENT
  Sex: Male

DRUGS (1)
  1. HUMALOG [Suspect]
     Active Substance: INSULIN LISPRO
     Dosage: UNK
     Route: 058

REACTIONS (6)
  - Muscle spasms [Unknown]
  - Drug ineffective [Unknown]
  - Hyperhidrosis [Unknown]
  - Vomiting [Unknown]
  - Fear of injection [Unknown]
  - Blood glucose increased [Recovering/Resolving]
